FAERS Safety Report 13076200 (Version 2)
Quarter: 2017Q1

REPORT INFORMATION
  Report Type: Report from Study
  Country: PT (occurrence: DE)
  Receive Date: 20161230
  Receipt Date: 20170106
  Transmission Date: 20170428
  Serious: Yes (Hospitalization)
  Sender: FDA-Public Use
  Company Number: PT-SUNOVION-2016SUN003291

PATIENT

DRUGS (1)
  1. ZEBINIX [Suspect]
     Active Substance: ESLICARBAZEPINE ACETATE
     Indication: EPILEPSY
     Dosage: 800 MG, DAILY
     Route: 048
     Dates: start: 20161007, end: 20161212

REACTIONS (2)
  - Drug dose titration not performed [Unknown]
  - Bradycardia [Recovered/Resolved]

NARRATIVE: CASE EVENT DATE: 20161007
